FAERS Safety Report 20445633 (Version 1)
Quarter: 2022Q1

REPORT INFORMATION
  Report Type: Spontaneous
  Country: US (occurrence: US)
  Receive Date: 20220208
  Receipt Date: 20220208
  Transmission Date: 20220423
  Serious: Yes (Death, Other)
  Sender: FDA-Public Use
  Company Number: US-ALXN-A202201673

PATIENT
  Age: 59 Year
  Sex: Male
  Weight: 100.68 kg

DRUGS (1)
  1. ANDEXXA [Suspect]
     Active Substance: ANDEXANET ALFA
     Indication: Product used for unknown indication
     Dosage: 480 MG, SINGLE
     Route: 042
     Dates: start: 20220201

REACTIONS (2)
  - Death [Fatal]
  - Off label use [Unknown]

NARRATIVE: CASE EVENT DATE: 20220201
